FAERS Safety Report 16770839 (Version 2)
Quarter: 2020Q3

REPORT INFORMATION
  Report Type: Report from Study
  Country: CN (occurrence: CN)
  Receive Date: 20190904
  Receipt Date: 20200927
  Transmission Date: 20201102
  Serious: Yes (Hospitalization)
  Sender: FDA-Public Use
  Company Number: CN-ROCHE-2389945

PATIENT
  Age: 54 Year
  Sex: Female
  Weight: 54 kg

DRUGS (29)
  1. ZOLEDRONIC ACID [Concomitant]
     Active Substance: ZOLEDRONIC ACID
     Dates: start: 20190711, end: 20190711
  2. OXYCODONE HYDROCHLORIDE. [Concomitant]
     Active Substance: OXYCODONE HYDROCHLORIDE
     Indication: PAIN
     Dates: start: 20190822
  3. SODIUM CHLORIDE. [Concomitant]
     Active Substance: SODIUM CHLORIDE
     Dates: start: 20190711, end: 20190711
  4. TROPISETRON HYDROCHLORIDE [Concomitant]
     Active Substance: TROPISETRON HYDROCHLORIDE
     Dates: start: 20190711, end: 20190711
  5. METOCLOPRAMIDE DIHYDROCHLORIDE [Concomitant]
     Dates: start: 20190711, end: 20190711
  6. DIMETHICONE. [Concomitant]
     Active Substance: DIMETHICONE
     Indication: ENDOSCOPY UPPER GASTROINTESTINAL TRACT
     Dates: start: 20190804, end: 20190804
  7. DIAMMONIUM GLYCYRRHIZINATE [Concomitant]
     Active Substance: HERBALS\DIAMMONIUM GLYCYRRHIZINATE
     Dates: start: 20190803, end: 20190807
  8. MOSAPRIDE CITRATE [Concomitant]
     Active Substance: MOSAPRIDE CITRATE
     Indication: ABDOMINAL DISCOMFORT
     Dates: start: 20190803
  9. LACTULOSE. [Concomitant]
     Active Substance: LACTULOSE
     Indication: CONSTIPATION
     Dates: start: 20190801, end: 20190818
  10. INDAPAMIDE. [Concomitant]
     Active Substance: INDAPAMIDE
     Indication: BLOOD PRESSURE MEASUREMENT
     Dates: start: 20181101
  11. PRONASE [Concomitant]
     Active Substance: PROTEASE
     Indication: ENDOSCOPY UPPER GASTROINTESTINAL TRACT
     Dates: start: 20190804, end: 20190804
  12. OXYCODONE AND ACETAMINOPHEN [Concomitant]
     Active Substance: ACETAMINOPHEN\OXYCODONE HYDROCHLORIDE
     Indication: PAIN
     Dates: start: 201807
  13. MULTIVITAMIN WITH MINERALS [Concomitant]
     Active Substance: MINERALS\VITAMINS
     Dates: start: 20180822
  14. POTASSIUM CHLORIDE. [Concomitant]
     Active Substance: POTASSIUM CHLORIDE
     Dates: start: 20190801, end: 20190801
  15. OMEPRAZOLE MAGNESIUM. [Suspect]
     Active Substance: OMEPRAZOLE MAGNESIUM
     Indication: PRODUCT USED FOR UNKNOWN INDICATION
     Route: 065
     Dates: start: 20190801
  16. IBUPROFEN SUSTAINED RELEASE [Concomitant]
     Indication: PYREXIA
     Dates: start: 20190701, end: 20190703
  17. DYCLONINE HYDROCHLORIDE [Concomitant]
     Active Substance: DYCLONINE HYDROCHLORIDE
     Indication: ENDOSCOPY UPPER GASTROINTESTINAL TRACT
     Dates: start: 20190804, end: 20190804
  18. MORPHINE SULFATE. [Concomitant]
     Active Substance: MORPHINE SULFATE
     Indication: BACK PAIN
     Dates: start: 20190805, end: 20190822
  19. METOCLOPRAMIDE DIHYDROCHLORIDE [Concomitant]
     Dates: start: 20190803, end: 20190803
  20. MONOAMMONIUM GLYCYRRHIZINATE AND CYSTEINE AND SODIUM CHLORIDE [Concomitant]
     Active Substance: AMMONIUM GLYCYRRHIZATE\CYSTEINE
     Dates: start: 20190802, end: 20190802
  21. GLYCEROL [Concomitant]
     Active Substance: GLYCERIN
     Indication: CONSTIPATION
     Dates: start: 20190801, end: 20190804
  22. ATEZOLIZUMAB. [Suspect]
     Active Substance: ATEZOLIZUMAB
     Indication: NON-SMALL CELL LUNG CANCER STAGE IV
     Dosage: MOST RECENT DOSE OF MPDL3280A TO AE ONSET: 11/JUL/2019
     Route: 042
     Dates: start: 20180928
  23. CISPLATIN. [Suspect]
     Active Substance: CISPLATIN
     Indication: NON-SMALL CELL LUNG CANCER STAGE IV
     Dosage: MOST RECENT DOSE OF CISPLATIN (120 MG) PRIOR TO AE ONSET: 18/JAN/2019
     Route: 042
     Dates: start: 20180928
  24. PEMETREXED. [Suspect]
     Active Substance: PEMETREXED
     Indication: NON-SMALL CELL LUNG CANCER STAGE IV
     Dosage: MOST RECENT DOSE OF PEMETREXED (800 MG) PRIOR TO AE ONSET: 11/JUL/2019
     Route: 042
     Dates: start: 20180928
  25. OMEPRAZOLE. [Concomitant]
     Active Substance: OMEPRAZOLE
     Indication: ABDOMINAL DISCOMFORT
     Dates: start: 20190801
  26. METOCLOPRAMIDE DIHYDROCHLORIDE [Concomitant]
     Indication: VOMITING
     Dates: start: 20190801, end: 20190801
  27. PROMETHAZINE HYDROCHLORIDE. [Concomitant]
     Active Substance: PROMETHAZINE HYDROCHLORIDE
     Indication: VOMITING
     Dates: start: 20190803, end: 20190803
  28. SAFFLOWER EXTRACT AND ACEGLUTAMIDE [Concomitant]
     Indication: ANAEMIA
     Dates: start: 20190802, end: 20190806
  29. PARACETAMOL + TRAMADOL HYDROCHLORIDE [Concomitant]
     Active Substance: ACETAMINOPHEN\TRAMADOL HYDROCHLORIDE
     Indication: BACK PAIN
     Dates: start: 20190729, end: 20190805

REACTIONS (1)
  - Chronic gastritis [Not Recovered/Not Resolved]

NARRATIVE: CASE EVENT DATE: 20190801
